FAERS Safety Report 8503044-3 (Version None)
Quarter: 2012Q3

REPORT INFORMATION
  Report Type: 
  Country: None (occurrence: None)
  Receive Date: 20120711
  Receipt Date: 20120702
  Transmission Date: 20120928
  Serious: Yes (Death, Hospitalization)
  Sender: FDA-Public Use
  Company Number: DE-ELI_LILLY_AND_COMPANY-DE201205007391

PATIENT
  Age: 80 Year
  Sex: Female

DRUGS (9)
  1. DURAGESIC-100 [Concomitant]
  2. ASPIRIN [Concomitant]
     Dosage: 100 MG, UNK
  3. PREDNISONE TAB [Concomitant]
  4. FORADIL [Concomitant]
  5. FORTEO [Suspect]
     Indication: OSTEOPOROSIS
     Dosage: UNK, QD
     Route: 058
     Dates: start: 20120424
  6. ENALAPRIL MALEATE [Concomitant]
  7. MORPHINE [Concomitant]
  8. THEOPHYLLINE [Concomitant]
  9. BERODUAL [Concomitant]

REACTIONS (2)
  - BRAIN STEM HAEMORRHAGE [None]
  - DYSPNOEA [None]
